FAERS Safety Report 9665657 (Version 1)
Quarter: 2013Q4

REPORT INFORMATION
  Report Type: Spontaneous
  Country: CN (occurrence: CN)
  Receive Date: 20131104
  Receipt Date: 20131104
  Transmission Date: 20140711
  Serious: Yes (Hospitalization)
  Sender: FDA-Public Use
  Company Number: PHHY2013CN123605

PATIENT
  Age: 50 Year
  Sex: Male
  Weight: 75 kg

DRUGS (1)
  1. LESCOL [Suspect]
     Indication: LIPIDS ABNORMAL
     Dosage: 40 MG, QID
     Route: 048
     Dates: start: 20121117, end: 20121125

REACTIONS (1)
  - Hepatic function abnormal [Recovering/Resolving]
